FAERS Safety Report 8933667 (Version 3)
Quarter: 2013Q1

REPORT INFORMATION
  Report Type: Spontaneous
  Country: US (occurrence: US)
  Receive Date: 20121129
  Receipt Date: 20130211
  Transmission Date: 20140127
  Serious: Yes (Other)
  Sender: FDA-Public Use
  Company Number: PHEH2012US023263

PATIENT
  Sex: Female

DRUGS (15)
  1. ARCAPTA [Suspect]
     Dosage: 75 UG, QD
  2. LYRICA [Suspect]
  3. FENTANYL [Concomitant]
     Dosage: 50 MG, QOD
     Route: 062
  4. GABAPENTINE [Concomitant]
     Dosage: 800 MG, TID
  5. HYDROCODONE BITARTRATE AND ACETAMINOPHEN [Concomitant]
  6. PANTOPRAZOLE [Concomitant]
     Dosage: 40 MG, BID
  7. ISOSORBIDE [Concomitant]
     Dosage: 30 MG, BID
  8. AMLODIPINE BESYLATE [Concomitant]
     Dosage: 5 MG, QD
  9. FOLIC ACID [Concomitant]
     Dosage: 1 MG, QD
  10. NITROSTAT [Concomitant]
     Dosage: 0.4 MG, PRN
  11. ATENOLOL [Concomitant]
     Dosage: 25 MG, QD
  12. ONDANSETRON [Concomitant]
     Dosage: 4 MG, PRN
  13. ASPIRIN [Concomitant]
     Dosage: 8 MG, BID
  14. VITAMIN B12 [Concomitant]
     Dosage: 2500 MG, QD
  15. PROAIR (FLUTICASONE PROPIONATE) [Concomitant]

REACTIONS (12)
  - Feeling abnormal [Unknown]
  - Hypersensitivity [Unknown]
  - Pharyngeal oedema [Unknown]
  - Motor dysfunction [Unknown]
  - Dyspnoea [Unknown]
  - Pain [Unknown]
  - Fatigue [Unknown]
  - Influenza like illness [Unknown]
  - Malaise [Unknown]
  - Disorientation [Unknown]
  - Chest pain [Unknown]
  - Nausea [Unknown]
